FAERS Safety Report 8322959 (Version 6)
Quarter: 2014Q1

REPORT INFORMATION
  Report Type: Report from Study
  Country: US (occurrence: US)
  Receive Date: 20120105
  Receipt Date: 20140102
  Transmission Date: 20141002
  Serious: Yes (Life-Threatening, Hospitalization)
  Sender: FDA-Public Use
  Company Number: PHHO2011US021717

PATIENT
  Age: 46 Year
  Sex: Female
  Weight: 90.3 kg

DRUGS (20)
  1. METOPROLOL SUCCINATE ER [Suspect]
     Dosage: 25 MG, BID
     Route: 048
     Dates: start: 20110617, end: 20120430
  2. METOPROLOL SUCCINATE ER [Suspect]
     Dosage: 50 MG, BID
     Route: 048
     Dates: start: 20120501
  3. BLINDED ACZ885 [Suspect]
     Indication: CARDIOVASCULAR EVENT PROPHYLAXIS
     Dosage: CODE NOT BROKEN
     Route: 058
     Dates: start: 20110623, end: 20130917
  4. BLINDED NO TREATMENT RECEIVED [Suspect]
     Indication: CARDIOVASCULAR EVENT PROPHYLAXIS
     Dosage: CODE NOT BROKEN
     Route: 058
     Dates: start: 20110623, end: 20130917
  5. BLINDED PLACEBO [Suspect]
     Indication: CARDIOVASCULAR EVENT PROPHYLAXIS
     Dosage: CODE NOT BROKEN
     Route: 058
     Dates: start: 20110623, end: 20130917
  6. KLONOPIN [Suspect]
     Indication: ANXIETY
     Dosage: WEEKLY
     Dates: start: 20110818
  7. SEROQUEL XR [Concomitant]
     Indication: DEPRESSION
     Dosage: 300 MG, QHS
     Route: 048
     Dates: start: 20120710
  8. SEROQUEL XR [Concomitant]
     Dosage: UNK
     Route: 048
     Dates: end: 20131113
  9. EFFEXOR [Concomitant]
     Indication: DEPRESSION
     Dosage: 37.5 MG, QW
     Dates: start: 20110804
  10. EFFEXOR [Concomitant]
     Dosage: UNK
     Dates: start: 20110902
  11. EFFEXOR [Concomitant]
     Dosage: 150 MG, QD
     Route: 048
     Dates: start: 20111025, end: 20120508
  12. EFFEXOR [Concomitant]
     Dosage: UNK
     Dates: start: 20120510
  13. BUSPAR [Concomitant]
     Indication: DEPRESSION
     Dosage: 10 MG, BID
     Route: 048
     Dates: start: 20120327, end: 20120413
  14. BUSPAR [Concomitant]
     Indication: ANXIETY
     Dosage: 15 MG, BID
     Route: 048
     Dates: start: 20120415, end: 20131113
  15. TRAZODONE [Concomitant]
     Indication: INSOMNIA
     Dosage: 150 MG, QHS
     Route: 048
     Dates: start: 20120327, end: 20120508
  16. TRAZODONE [Concomitant]
     Dosage: 200 MG, QHS
     Route: 048
     Dates: start: 20120509
  17. TRAZODONE [Concomitant]
     Dosage: 100 MG, QHS
     Route: 048
     Dates: start: 20130117, end: 20131113
  18. ELECTRICAL STIMULATION THERAPY [Concomitant]
     Indication: DEPRESSION
     Dosage: ONCE
     Dates: start: 20120312, end: 20131024
  19. ASPIRIN [Concomitant]
     Indication: CORONARY ARTERY DISEASE
     Dosage: 81 MG, QD
     Route: 048
     Dates: start: 20111128
  20. PROZAC [Concomitant]

REACTIONS (6)
  - Suicide attempt [Recovered/Resolved]
  - Overdose [Recovered/Resolved]
  - Concomitant disease progression [Unknown]
  - Suicidal ideation [Recovered/Resolved]
  - Angina unstable [Recovered/Resolved]
  - Palpitations [Recovered/Resolved]
